FAERS Safety Report 7492626-6 (Version None)
Quarter: 2011Q2

REPORT INFORMATION
  Report Type: 
  Country: None (occurrence: None)
  Receive Date: 20110519
  Receipt Date: 20110509
  Transmission Date: 20111010
  Serious: Yes (Disabling)
  Sender: FDA-Public Use
  Company Number: DE-ELI_LILLY_AND_COMPANY-DE201103007891

PATIENT
  Sex: Male

DRUGS (7)
  1. CALCIMAGON-D 3 [Concomitant]
     Dosage: UNK, BID
     Route: 065
  2. PANTOPRAZOLE [Concomitant]
     Dosage: UNK, QD
     Route: 065
  3. BUPRENORPHINE [Concomitant]
     Dosage: UNK, WEEKLY (1/W)
     Route: 065
  4. TEMGESIC [Concomitant]
     Indication: BREAKTHROUGH PAIN
     Dosage: UNK, UNKNOWN
     Route: 065
  5. PREDNISOLONE [Concomitant]
     Dosage: UNK UNK, BID
     Route: 065
  6. VITADRAL [Concomitant]
     Dosage: UNK, PRN
     Route: 065
  7. FORTEO [Suspect]
     Indication: OSTEOPOROSIS
     Dosage: 20 UG, QD
     Route: 058
     Dates: start: 20100826, end: 20110328

REACTIONS (4)
  - ERYTHEMA [None]
  - PRURITUS [None]
  - SKIN EXFOLIATION [None]
  - DERMATITIS ALLERGIC [None]
